FAERS Safety Report 7933228-4 (Version None)
Quarter: 2011Q4

REPORT INFORMATION
  Report Type: 
  Country: None (occurrence: None)
  Receive Date: 20111122
  Receipt Date: 20111111
  Transmission Date: 20120403
  Serious: Yes (Other)
  Sender: FDA-Public Use
  Company Number: US-JNJFOC-20111106009

PATIENT
  Age: 75 Year
  Sex: Male

DRUGS (2)
  1. ZYTIGA [Suspect]
     Indication: PROSTATE CANCER
     Route: 048
     Dates: end: 20111109
  2. OXYCONTIN [Suspect]
     Indication: PAIN
     Route: 065

REACTIONS (2)
  - SOMNOLENCE [None]
  - MENTAL STATUS CHANGES [None]
